FAERS Safety Report 11067365 (Version 1)
Quarter: 2015Q2

REPORT INFORMATION
  Report Type: Report from Study
  Country: US (occurrence: US)
  Receive Date: 20150426
  Receipt Date: 20150426
  Transmission Date: 20150821
  Serious: Yes (Life-Threatening, Hospitalization, Other)
  Sender: FDA-Public Use
  Company Number: US-BRISTOL-MYERS SQUIBB COMPANY-15747363

PATIENT
  Age: 54 Year
  Sex: Male

DRUGS (15)
  1. CALCIUM + VITAMIN D [Concomitant]
     Active Substance: CALCIUM\VITAMIN D
     Dosage: 1 DF=2 TABS
     Route: 048
     Dates: start: 200808
  2. VITAMIN B12 [Concomitant]
     Active Substance: CYANOCOBALAMIN
     Dosage: 1000 ?G, QD
     Route: 048
     Dates: start: 2009
  3. COMPAZINE [Concomitant]
     Active Substance: PROCHLORPERAZINE MALEATE
     Dosage: PRN
     Dates: start: 20100418
  4. OMEPRAZOL E [Concomitant]
     Active Substance: OMEPRAZOLE
     Dosage: 20 MG, QD
     Route: 048
     Dates: start: 200907
  5. CLONAZEPAM. [Concomitant]
     Active Substance: CLONAZEPAM
     Dosage: .5 MG, QD
     Dates: start: 201011
  6. CYANOCOBALAMIN. [Concomitant]
     Active Substance: CYANOCOBALAMIN
     Dosage: 1000 ?G, QD
     Dates: start: 2009
  7. LOVENOX [Concomitant]
     Active Substance: ENOXAPARIN SODIUM
     Indication: DEEP VEIN THROMBOSIS
     Dosage: 30 MG, QD
     Route: 058
     Dates: start: 20110701
  8. IPILIMUMAB [Suspect]
     Active Substance: IPILIMUMAB
     Indication: MALIGNANT MELANOMA
     Dosage: 1265 MG/ 3 WEEKS
     Route: 042
     Dates: start: 20110228, end: 20110502
  9. COUMADIN [Concomitant]
     Active Substance: WARFARIN SODIUM
     Dosage: 8 MG (T-TH-SAT-SUN); ALSO TAKEN 10MG (M-W-F)
     Route: 048
     Dates: start: 201010, end: 20110601
  10. PRISTIQ EXTENDED RELEASE [Concomitant]
     Active Substance: DESVENLAFAXINE SUCCINATE
     Dosage: 100 MG, QD
     Route: 048
     Dates: start: 201002
  11. WELLBUTRIN [Concomitant]
     Active Substance: BUPROPION HYDROCHLORIDE
     Dosage: 150 MG, QD
     Route: 048
     Dates: start: 201011
  12. BUPROPION [Concomitant]
     Active Substance: BUPROPION
     Dosage: 150 MG, QD
     Dates: start: 201011
  13. ACETAMINOPHEN. [Concomitant]
     Active Substance: ACETAMINOPHEN
     Dosage: UNK UNK, PRN
     Dates: start: 20100906
  14. IMODIUM [Concomitant]
     Active Substance: LOPERAMIDE HYDROCHLORIDE
     Dosage: 2 MG, PRN
     Dates: start: 20110311
  15. PREDNISONE. [Concomitant]
     Active Substance: PREDNISONE
     Dosage: 80 MG, QD

REACTIONS (4)
  - Ileus [Unknown]
  - Diarrhoea [Recovered/Resolved with Sequelae]
  - Hypokalaemia [Recovered/Resolved]
  - Gastroenteritis [Recovered/Resolved with Sequelae]

NARRATIVE: CASE EVENT DATE: 20110507
